FAERS Safety Report 9818438 (Version 1)
Quarter: 2014Q1

REPORT INFORMATION
  Report Type: Spontaneous
  Country: US (occurrence: None)
  Receive Date: 20140113
  Receipt Date: 20140113
  Transmission Date: 20141002
  Serious: No
  Sender: FDA-Public Use
  Company Number: None

PATIENT
  Age: 59 Year
  Sex: Male
  Weight: 86.6 kg

DRUGS (1)
  1. LISINOPRIL [Suspect]
     Indication: CARDIAC FAILURE CONGESTIVE
     Dosage: AM
     Route: 048
     Dates: start: 20130815, end: 20131011

REACTIONS (2)
  - Angioedema [None]
  - Tongue disorder [None]
